FAERS Safety Report 6618152-1 (Version None)
Quarter: 2010Q1

REPORT INFORMATION
  Report Type: 
  Country: None (occurrence: None)
  Receive Date: 20100308
  Receipt Date: 20100224
  Transmission Date: 20100710
  Serious: Yes (Hospitalization)
  Sender: FDA-Public Use
  Company Number: DE-PFIZER INC-2010023831

PATIENT
  Age: 67 Year
  Sex: Male
  Weight: 90 kg

DRUGS (5)
  1. SOMATROPIN [Suspect]
     Indication: HYPOPITUITARISM
     Dosage: 0.2 MG, 1X/DAY
     Route: 058
     Dates: start: 19980219
  2. DESMOPRESSIN ACETATE [Concomitant]
     Dosage: 20-30 UG DAILY
     Dates: start: 19970401
  3. LEVOTHYROXINE [Concomitant]
     Dosage: 100 UG, 1X/DAY
     Dates: start: 19970901
  4. TESTOSTERONE [Concomitant]
     Dosage: 250 MG, EVERY 3 WEEKS
     Dates: start: 19970801
  5. HYDROCORTISONE [Concomitant]
     Dosage: 30 MG, 1X/DAY
     Dates: start: 19970301

REACTIONS (1)
  - PITUITARY TUMOUR BENIGN [None]
